FAERS Safety Report 14912358 (Version 1)
Quarter: 2018Q2

REPORT INFORMATION
  Report Type: Spontaneous
  Country: US (occurrence: US)
  Receive Date: 20180501
  Receipt Date: 20180501
  Transmission Date: 20180711
  Serious: Yes (Other)
  Sender: FDA-Public Use
  Company Number: None

PATIENT
  Age: 6 Year
  Sex: Male
  Weight: 22.5 kg

DRUGS (1)
  1. MONTELUKAST [Suspect]
     Active Substance: MONTELUKAST SODIUM
     Indication: ASTHMA
     Dosage: ?          QUANTITY:1 TABLET(S);?
     Route: 048

REACTIONS (12)
  - Mania [None]
  - Aggression [None]
  - Headache [None]
  - Anxiety [None]
  - Obsessive-compulsive symptom [None]
  - Mental disorder [None]
  - Sleep terror [None]
  - Hypersensitivity [None]
  - Confusional state [None]
  - Autism spectrum disorder [None]
  - Enuresis [None]
  - Intentional self-injury [None]
